FAERS Safety Report 7305251-4 (Version None)
Quarter: 2011Q1

REPORT INFORMATION
  Report Type: 
  Country: None (occurrence: None)
  Receive Date: 20110222
  Receipt Date: 20110215
  Transmission Date: 20110831
  Serious: Yes (Other)
  Sender: FDA-Public Use
  Company Number: US-PFIZER INC-2011000547

PATIENT
  Sex: Female

DRUGS (2)
  1. LYRICA [Suspect]
     Indication: MULTIPLE SCLEROSIS
     Dosage: 150 MG, 3X/DAY
     Route: 048
     Dates: start: 20100601
  2. LYRICA [Suspect]
     Dosage: 450 MG, 3X/DAY
     Route: 048
     Dates: start: 20100101

REACTIONS (9)
  - DEPRESSION [None]
  - AMNESIA [None]
  - SPEECH DISORDER [None]
  - GAIT DISTURBANCE [None]
  - ALOPECIA [None]
  - ACCIDENTAL OVERDOSE [None]
  - MULTIPLE SCLEROSIS RELAPSE [None]
  - BALANCE DISORDER [None]
  - HYPERTENSION [None]
